FAERS Safety Report 13724436 (Version 1)
Quarter: 2017Q3

REPORT INFORMATION
  Report Type: Spontaneous
  Country: US (occurrence: US)
  Receive Date: 20170706
  Receipt Date: 20170706
  Transmission Date: 20171127
  Serious: No
  Sender: FDA-Public Use
  Company Number: US-JNJFOC-20170515550

PATIENT
  Age: 14 Year
  Sex: Male
  Weight: 39.92 kg

DRUGS (1)
  1. REMICADE [Suspect]
     Active Substance: INFLIXIMAB
     Indication: CROHN^S DISEASE
     Route: 042
     Dates: start: 2013

REACTIONS (6)
  - Streptococcal infection [Unknown]
  - Pain in extremity [Not Recovered/Not Resolved]
  - Off label use [Unknown]
  - Myalgia [Not Recovered/Not Resolved]
  - Product use issue [Unknown]
  - Fall [Unknown]

NARRATIVE: CASE EVENT DATE: 2013
